FAERS Safety Report 16849391 (Version 2)
Quarter: 2019Q4

REPORT INFORMATION
  Report Type: Report from Study
  Country: US (occurrence: US)
  Receive Date: 20190925
  Receipt Date: 20191025
  Transmission Date: 20200122
  Serious: Yes (Hospitalization, Other)
  Sender: FDA-Public Use
  Company Number: US-ASPEN-GLO2019US010130

PATIENT
  Age: 15 Year
  Sex: Male
  Weight: 178.5 kg

DRUGS (5)
  1. CYCLOPHOSPHAMIDE. [Suspect]
     Active Substance: CYCLOPHOSPHAMIDE
     Indication: ACUTE LYMPHOCYTIC LEUKAEMIA
     Dosage: 1940 MG, DAY 29
     Route: 042
     Dates: start: 20190816
  2. METHOTREXATE. [Suspect]
     Active Substance: METHOTREXATE
     Indication: ACUTE LYMPHOCYTIC LEUKAEMIA
     Dosage: 15 MG, DAY 29 AND 36
     Route: 037
     Dates: start: 20190816
  3. TIOGUANINE [Suspect]
     Active Substance: THIOGUANINE ANHYDROUS
     Indication: ACUTE LYMPHOCYTIC LEUKAEMIA
     Dosage: 120 MG DAYS 29-42
     Route: 048
     Dates: start: 20190816
  4. CYTARABINE. [Suspect]
     Active Substance: CYTARABINE
     Indication: ACUTE LYMPHOCYTIC LEUKAEMIA
     Dosage: 146 MG, DAY 29-32 AND DAY 36-39
     Route: 042
     Dates: start: 20190816
  5. RUXOLITINIB [Suspect]
     Active Substance: RUXOLITINIB
     Indication: ACUTE LYMPHOCYTIC LEUKAEMIA
     Dosage: 95 MG, BID DAYS 29-42
     Route: 048
     Dates: start: 20190816

REACTIONS (4)
  - Febrile neutropenia [Recovered/Resolved]
  - Vomiting [Unknown]
  - Sepsis [Recovered/Resolved]
  - Venoocclusive liver disease [Recovered/Resolved]

NARRATIVE: CASE EVENT DATE: 20190826
